FAERS Safety Report 7367080-5 (Version None)
Quarter: 2011Q1

REPORT INFORMATION
  Report Type: 
  Country: None (occurrence: None)
  Receive Date: 20110322
  Receipt Date: 20110103
  Transmission Date: 20110831
  Serious: No
  Sender: FDA-Public Use
  Company Number: US-TYCO HEALTHCARE/MALLINCKRODT-T201100018

PATIENT
  Sex: Female
  Weight: 74.83 kg

DRUGS (5)
  1. LYRICA [Suspect]
     Indication: NEUROPATHY PERIPHERAL
     Dosage: 50 MG, BID
     Route: 048
     Dates: start: 20101201
  2. FENTANYL [Suspect]
     Indication: FIBROMYALGIA
     Dosage: 1 PATCH EVERY 72 HOURS
     Route: 062
     Dates: start: 20101201
  3. METHYLPREDNISOLONE [Suspect]
     Indication: PRODUCT USED FOR UNKNOWN INDICATION
     Dosage: 4 MG, BID
     Route: 048
     Dates: start: 20101201
  4. FENTANYL [Suspect]
     Dosage: 50 ?G PATCH Q 72 HRS
     Dates: start: 20101201
  5. METHADONE [Suspect]
     Indication: PRODUCT USED FOR UNKNOWN INDICATION
     Dosage: 10 MG, BID
     Route: 048
     Dates: start: 20101201

REACTIONS (5)
  - BALANCE DISORDER [None]
  - FALL [None]
  - DEPRESSION [None]
  - PAIN [None]
  - HEADACHE [None]
